FAERS Safety Report 13908414 (Version 1)
Quarter: 2017Q3

REPORT INFORMATION
  Report Type: Spontaneous
  Country: ES (occurrence: ES)
  Receive Date: 20170826
  Receipt Date: 20170826
  Transmission Date: 20171127
  Serious: Yes (Hospitalization, Other)
  Sender: FDA-Public Use
  Company Number: ES-009507513-1708ESP009581

PATIENT
  Age: 59 Year
  Sex: Female

DRUGS (5)
  1. INSULATARD FLEXPEN [Concomitant]
     Active Substance: INSULIN HUMAN
     Dosage: STRENGTH: 100 UI/ML
     Dates: start: 2008
  2. XELEVIA [Suspect]
     Active Substance: SITAGLIPTIN PHOSPHATE
     Indication: TYPE 2 DIABETES MELLITUS
     Dosage: UNK
     Route: 048
     Dates: start: 201609, end: 201707
  3. HYDROCHLOROTHIAZIDE (+) RAMIPRIL [Concomitant]
     Dosage: UNK
     Dates: start: 2016
  4. EUTIROX [Concomitant]
     Active Substance: LEVOTHYROXINE SODIUM
     Dosage: UNK
     Dates: start: 2014
  5. SIMVASTATIN. [Concomitant]
     Active Substance: SIMVASTATIN
     Dosage: UNK
     Dates: start: 2012

REACTIONS (2)
  - Pancreatitis [Unknown]
  - Cholecystitis acute [Unknown]

NARRATIVE: CASE EVENT DATE: 20170702
